FAERS Safety Report 7123229-0 (Version None)
Quarter: 2010Q4

REPORT INFORMATION
  Report Type: 
  Country: None (occurrence: None)
  Receive Date: 20101125
  Receipt Date: 20101117
  Transmission Date: 20110411
  Serious: No
  Sender: FDA-Public Use
  Company Number: US-BIOGENIDEC-2010BI040748

PATIENT
  Age: 48 Year
  Sex: Female

DRUGS (3)
  1. TYSABRI [Suspect]
     Indication: MULTIPLE SCLEROSIS
     Route: 042
     Dates: start: 20090710
  2. TYSABRI [Suspect]
     Route: 042
     Dates: start: 20060823, end: 20080718
  3. TYSABRI [Suspect]
     Route: 042
     Dates: start: 20050127

REACTIONS (1)
  - VIRAL TEST POSITIVE [None]
